FAERS Safety Report 10358320 (Version 3)
Quarter: 2014Q3

REPORT INFORMATION
  Report Type: Report from Study
  Country: BR (occurrence: BR)
  Receive Date: 20140801
  Receipt Date: 20140929
  Transmission Date: 20150326
  Serious: Yes (Hospitalization, Other)
  Sender: FDA-Public Use
  Company Number: BR-ABBVIE-11P-020-0834817-00

PATIENT
  Sex: Female
  Weight: 90 kg

DRUGS (6)
  1. DIOSMIN [Concomitant]
     Active Substance: DIOSMIN
     Indication: CARDIOVASCULAR DISORDER
     Dosage: SACHET OF 900MG/ 1 ENVELOPE PER DAY
     Route: 048
     Dates: start: 2013
  2. KEFLEX [Suspect]
     Active Substance: CEPHALEXIN
     Indication: ANTIBIOTIC THERAPY
  3. TIBIAL [Concomitant]
     Indication: HORMONE THERAPY
     Route: 048
     Dates: start: 1966
  4. ALGINAC [Concomitant]
     Active Substance: CYANOCOBALAMIN\DICLOFENAC SODIUM\PYRIDOXINE HYDROCHLORIDE\THIAMINE MONONITRATE
     Indication: PAIN
     Route: 048
  5. HUMIRA [Suspect]
     Active Substance: ADALIMUMAB
     Indication: RHEUMATOID ARTHRITIS
     Route: 058
     Dates: start: 20110303
  6. DIOVAN [Concomitant]
     Active Substance: VALSARTAN
     Indication: BLOOD PRESSURE ABNORMAL
     Route: 048

REACTIONS (15)
  - Knee operation [Recovering/Resolving]
  - Joint swelling [Unknown]
  - Drug hypersensitivity [Unknown]
  - Injection site erythema [Recovered/Resolved]
  - Arthralgia [Recovering/Resolving]
  - Pain in extremity [Recovered/Resolved]
  - Peripheral vascular disorder [Recovered/Resolved]
  - Erythema [Recovered/Resolved]
  - Arthralgia [Recovered/Resolved]
  - Erysipelas [Recovering/Resolving]
  - Peripheral swelling [Unknown]
  - Arthralgia [Recovering/Resolving]
  - Gait disturbance [Unknown]
  - Osteoarthritis [Recovering/Resolving]
  - Weight abnormal [Unknown]

NARRATIVE: CASE EVENT DATE: 2012
